FAERS Safety Report 4516512-6 (Version None)
Quarter: 2004Q4

REPORT INFORMATION
  Report Type: 
  Country: None (occurrence: None)
  Receive Date: 20041027
  Receipt Date: 20040721
  Transmission Date: 20050328
  Serious: No
  Sender: FDA-Public Use
  Company Number: US084447

PATIENT
  Sex: Male

DRUGS (2)
  1. SENSIPAR [Suspect]
     Indication: HYPERPARATHYROIDISM SECONDARY
     Dates: start: 20040701
  2. PARICALCITOL [Concomitant]

REACTIONS (1)
  - BLOOD PHOSPHORUS DECREASED [None]
